FAERS Safety Report 7919429-X (Version None)
Quarter: 2011Q4

REPORT INFORMATION
  Report Type: 
  Country: None (occurrence: None)
  Receive Date: 20111116
  Receipt Date: 20111116
  Transmission Date: 20120403
  Serious: No
  Sender: FDA-Public Use
  Company Number: None

PATIENT
  Sex: Female
  Weight: 49 kg

DRUGS (3)
  1. BEVACIZUMAB (RHUMAB VEGF) [Suspect]
     Dosage: 245 MG
  2. IRINOTECAN HCL [Suspect]
     Dosage: 176 MG
  3. ELOXATIN [Concomitant]
     Dosage: 74 MG

REACTIONS (2)
  - MIGRAINE [None]
  - ACTIVITIES OF DAILY LIVING IMPAIRED [None]
